FAERS Safety Report 6221321-6 (Version None)
Quarter: 2009Q2

REPORT INFORMATION
  Report Type: 
  Country: None (occurrence: None)
  Receive Date: 20090610
  Receipt Date: 20090602
  Transmission Date: 20091009
  Serious: Yes (Other)
  Sender: FDA-Public Use
  Company Number: US-TYCO HEALTHCARE/MALLINCKRODT-T200901106

PATIENT
  Sex: Female

DRUGS (1)
  1. OPTIRAY 350 [Suspect]
     Indication: COMPUTERISED TOMOGRAM
     Dosage: 100 ML, SINGLE
     Route: 042
     Dates: start: 20090521, end: 20090521

REACTIONS (5)
  - CHEST DISCOMFORT [None]
  - PHARYNGEAL OEDEMA [None]
  - PRURITUS [None]
  - THROAT IRRITATION [None]
  - WHEEZING [None]
